FAERS Safety Report 6872122-7 (Version None)
Quarter: 2010Q3

REPORT INFORMATION
  Report Type: 
  Country: None (occurrence: None)
  Receive Date: 20100723
  Receipt Date: 20100713
  Transmission Date: 20110219
  Serious: Yes (Death)
  Sender: FDA-Public Use
  Company Number: US-PFIZER INC-2010073424

PATIENT
  Sex: Male
  Weight: 63.764 kg

DRUGS (1)
  1. CAMPTOSAR [Suspect]
     Indication: BONE NEOPLASM
     Dosage: 21 MG D1-5 AND D8-12

REACTIONS (2)
  - BONE NEOPLASM [None]
  - DISEASE PROGRESSION [None]
